FAERS Safety Report 5804207-8 (Version None)
Quarter: 2008Q3

REPORT INFORMATION
  Report Type: 
  Country: None (occurrence: None)
  Receive Date: 20080709
  Receipt Date: 20080701
  Transmission Date: 20090109
  Serious: Yes (Hospitalization)
  Sender: FDA-Public Use
  Company Number: US-AMGEN-QUU291860

PATIENT
  Sex: Female

DRUGS (1)
  1. ENBREL [Suspect]
     Indication: RHEUMATOID ARTHRITIS
     Route: 058
     Dates: start: 20020301

REACTIONS (6)
  - CORNEAL DISORDER [None]
  - PROCEDURAL NAUSEA [None]
  - PROCEDURAL VOMITING [None]
  - RHEUMATOID ARTHRITIS [None]
  - SHOULDER ARTHROPLASTY [None]
  - URINARY TRACT INFECTION [None]
